FAERS Safety Report 6156380-2 (Version None)
Quarter: 2009Q2

REPORT INFORMATION
  Report Type: 
  Country: None (occurrence: None)
  Receive Date: 20090416
  Receipt Date: 20090402
  Transmission Date: 20091009
  Serious: Yes (Other)
  Sender: FDA-Public Use
  Company Number: US-BAYER-200914902NA

PATIENT
  Age: 56 Year
  Sex: Female

DRUGS (4)
  1. BETASERON [Suspect]
     Indication: MULTIPLE SCLEROSIS
     Dosage: TOTAL DAILY DOSE: 2 MIU
     Route: 058
     Dates: start: 20090219
  2. BETASERON [Suspect]
     Dosage: TOTAL DAILY DOSE: 6 MIU
     Route: 058
  3. BETASERON [Suspect]
     Dosage: TOTAL DAILY DOSE: 8 MIU
     Route: 058
  4. DETROL [Concomitant]
     Indication: BLADDER DISORDER

REACTIONS (11)
  - AFFECT LABILITY [None]
  - ANTISOCIAL BEHAVIOUR [None]
  - CONFUSIONAL STATE [None]
  - DEPRESSION [None]
  - HYPERSOMNIA [None]
  - HYPOPHAGIA [None]
  - INJECTION SITE HAEMATOMA [None]
  - MEMORY IMPAIRMENT [None]
  - MOBILITY DECREASED [None]
  - MULTIPLE SCLEROSIS [None]
  - TREMOR [None]
